FAERS Safety Report 5289190-9 (Version None)
Quarter: 2007Q1

REPORT INFORMATION
  Report Type: 
  Country: None (occurrence: None)
  Receive Date: 20070119
  Receipt Date: 20060228
  Transmission Date: 20070707
  Serious: Yes (Other)
  Sender: FDA-Public Use
  Company Number: BDI-007986

PATIENT
  Age: 50 Year
  Sex: Male
  Weight: 89 kg

DRUGS (2)
  1. PROHANCE [Suspect]
     Indication: HYPOAESTHESIA
     Dosage: 18 ML ONCE IV
     Route: 042
     Dates: start: 20060227, end: 20060227
  2. PROHANCE [Suspect]
     Indication: NUCLEAR MAGNETIC RESONANCE IMAGING
     Dosage: 18 ML ONCE IV
     Route: 042
     Dates: start: 20060227, end: 20060227

REACTIONS (1)
  - HYPERSENSITIVITY [None]
